FAERS Safety Report 17591287 (Version 2)
Quarter: 2020Q2

REPORT INFORMATION
  Report Type: Spontaneous
  Country: US (occurrence: US)
  Receive Date: 20200327
  Receipt Date: 20200402
  Transmission Date: 20200713
  Serious: No
  Sender: FDA-Public Use
  Company Number: US-PFIZER INC-2020129254

PATIENT
  Age: 86 Year
  Sex: Female

DRUGS (2)
  1. RETACRIT [Suspect]
     Active Substance: EPOETIN ALFA-EPBX
     Indication: MYELOFIBROSIS
     Dosage: 10000 U/ML, UNK
  2. RETACRIT [Suspect]
     Active Substance: EPOETIN ALFA-EPBX
     Indication: MYELODYSPLASTIC SYNDROME
     Dosage: 30000 U/ML, WEEKLY

REACTIONS (5)
  - Product use in unapproved indication [Unknown]
  - Drug effective for unapproved indication [Unknown]
  - Anxiety [Unknown]
  - Malaise [Unknown]
  - Off label use [Unknown]
